FAERS Safety Report 7342020-3 (Version None)
Quarter: 2011Q1

REPORT INFORMATION
  Report Type: 
  Country: None (occurrence: None)
  Receive Date: 20110309
  Receipt Date: 20110302
  Transmission Date: 20110831
  Serious: Yes (Other)
  Sender: FDA-Public Use
  Company Number: US-US-EMD SERONO, INC.-7045426

PATIENT
  Sex: Male

DRUGS (3)
  1. REBIF [Suspect]
     Indication: PRODUCT USED FOR UNKNOWN INDICATION
     Route: 058
     Dates: start: 20100423, end: 20101201
  2. ADVIL [Concomitant]
     Indication: PREMEDICATION
  3. REBIF [Suspect]
     Route: 058
     Dates: start: 20101201

REACTIONS (7)
  - OPTIC NEURITIS [None]
  - HYPOAESTHESIA [None]
  - LIVER FUNCTION TEST ABNORMAL [None]
  - INJECTION SITE RASH [None]
  - FATIGUE [None]
  - ABDOMINAL DISCOMFORT [None]
  - PAIN [None]
